FAERS Safety Report 5280218-9 (Version None)
Quarter: 2007Q1

REPORT INFORMATION
  Report Type: 
  Country: None (occurrence: None)
  Receive Date: 20070329
  Receipt Date: 20070320
  Transmission Date: 20070707
  Serious: Yes (Hospitalization)
  Sender: FDA-Public Use
  Company Number: JP-ROCHE-489378

PATIENT
  Age: 24 Year
  Sex: Female

DRUGS (1)
  1. TAMIFLU [Suspect]
     Indication: INFLUENZA
     Dosage: DRUG NAME: TAMIFLU CAPSULE
     Route: 048
     Dates: start: 20070318, end: 20070320

REACTIONS (1)
  - LIVER DISORDER [None]
